FAERS Safety Report 4897599-8 (Version None)
Quarter: 2006Q1

REPORT INFORMATION
  Report Type: 
  Country: None (occurrence: None)
  Receive Date: 20060130
  Receipt Date: 20060130
  Transmission Date: 20060701
  Serious: Yes (Life-Threatening, Hospitalization)
  Sender: FDA-Public Use
  Company Number: None

PATIENT
  Age: 82 Year
  Sex: Male
  Weight: 58 kg

DRUGS (2)
  1. ATENOLOL [Suspect]
     Indication: ATRIAL FIBRILLATION
     Dosage: 25 MG PO DAILY
     Route: 048
  2. ATENOLOL [Suspect]
     Indication: CARDIAC FAILURE CONGESTIVE
     Dosage: 25 MG PO DAILY
     Route: 048

REACTIONS (1)
  - NODAL ARRHYTHMIA [None]
